FAERS Safety Report 22248109 (Version 1)
Quarter: 2023Q2

REPORT INFORMATION
  Report Type: Spontaneous
  Country: US (occurrence: US)
  Receive Date: 20230425
  Receipt Date: 20230425
  Transmission Date: 20230721
  Serious: Yes (Other)
  Sender: FDA-Public Use
  Company Number: None

PATIENT
  Age: 37 Year
  Sex: Female

DRUGS (17)
  1. ZOLPIDEM [Suspect]
     Active Substance: ZOLPIDEM TARTRATE
     Indication: Drug withdrawal syndrome
     Dosage: UNK
     Route: 065
     Dates: start: 2021
  2. LORAZEPAM [Suspect]
     Active Substance: LORAZEPAM
     Indication: Drug withdrawal syndrome
     Dosage: UNK
     Route: 065
     Dates: start: 2021
  3. ESCITALOPRAM [Suspect]
     Active Substance: ESCITALOPRAM OXALATE
     Indication: Drug withdrawal syndrome
     Dosage: UNK
     Route: 065
     Dates: start: 2021
  4. ARIPIPRAZOLE [Suspect]
     Active Substance: ARIPIPRAZOLE
     Indication: Drug withdrawal syndrome
     Dosage: UNK
     Route: 065
     Dates: start: 2021
  5. MAGNESIUM [Suspect]
     Active Substance: MAGNESIUM
     Indication: Drug withdrawal syndrome
     Dosage: UNK
     Route: 065
     Dates: start: 2021
  6. ESOMEPRAZOLE [Suspect]
     Active Substance: ESOMEPRAZOLE
     Indication: Drug withdrawal syndrome
     Dosage: UNK
     Route: 065
     Dates: start: 2021
  7. DOMPERIDONE [Concomitant]
     Active Substance: DOMPERIDONE
     Indication: Lactation stimulation therapy
     Dosage: 90 MILLIGRAM PER DAY
     Route: 065
     Dates: start: 202105, end: 202106
  8. DOMPERIDONE [Concomitant]
     Active Substance: DOMPERIDONE
     Dosage: 80 MILLIGRAM PER DAY (DECREASING 10 MG OF HER TOTAL DAILY DOSAGE AT WEEKLY INTERVALS)
     Route: 065
     Dates: start: 202106, end: 202107
  9. DOMPERIDONE [Concomitant]
     Active Substance: DOMPERIDONE
     Dosage: 70 MILLIGRAM PER DAY (DECREASING 10 MG OF HER TOTAL DAILY DOSAGE AT WEEKLY INTERVALS)
     Route: 065
     Dates: start: 202106, end: 202107
  10. DOMPERIDONE [Concomitant]
     Active Substance: DOMPERIDONE
     Dosage: 90 MILLIGRAM PER DAY
     Route: 065
     Dates: start: 202107, end: 202107
  11. DOMPERIDONE [Concomitant]
     Active Substance: DOMPERIDONE
     Dosage: 120 MILLIGRAM PER DAY
     Route: 065
     Dates: start: 202107, end: 202109
  12. DOMPERIDONE [Concomitant]
     Active Substance: DOMPERIDONE
     Dosage: 110 MILLIGRAM PER DAY
     Route: 065
     Dates: start: 202109, end: 202109
  13. DOMPERIDONE [Concomitant]
     Active Substance: DOMPERIDONE
     Dosage: 120 MILLIGRAM PER DAY
     Route: 065
     Dates: start: 202109, end: 202111
  14. DOMPERIDONE [Concomitant]
     Active Substance: DOMPERIDONE
     Dosage: 110 MILLIGRAM PER DAY
     Route: 065
     Dates: start: 202111, end: 202111
  15. DOMPERIDONE [Concomitant]
     Active Substance: DOMPERIDONE
     Dosage: 150 MILLIGRAM PER DAY
     Route: 065
     Dates: start: 202111, end: 202112
  16. DOMPERIDONE [Concomitant]
     Active Substance: DOMPERIDONE
     Dosage: 2.5 MILLIGRAM; (2.5 MG EVERY 2 WEEKS FOR 4 WEEKS)
     Route: 065
  17. DOMPERIDONE [Concomitant]
     Active Substance: DOMPERIDONE
     Dosage: 2.5 MILLIGRAM; REDUCTIONS EVERY WEEK AS TOLERATED
     Route: 065

REACTIONS (1)
  - Drug ineffective for unapproved indication [Unknown]

NARRATIVE: CASE EVENT DATE: 20210101
